FAERS Safety Report 7699543-7 (Version None)
Quarter: 2011Q3

REPORT INFORMATION
  Report Type: 
  Country: None (occurrence: None)
  Receive Date: 20110821
  Receipt Date: 20110812
  Transmission Date: 20111222
  Serious: Yes (Hospitalization, Other)
  Sender: FDA-Public Use
  Company Number: US-BRISTOL-MYERS SQUIBB COMPANY-15970379

PATIENT
  Age: 81 Year
  Sex: Male
  Weight: 79 kg

DRUGS (9)
  1. AMITRIPTYLINE HCL [Concomitant]
     Route: 048
  2. SIMVASTATIN [Concomitant]
     Route: 048
  3. IPILIMUMAB [Suspect]
     Indication: MALIGNANT MELANOMA
     Dosage: 10MG/KG
     Route: 042
     Dates: start: 20110607, end: 20110628
  4. HYDROCHLOROTHIAZIDE [Concomitant]
     Route: 048
  5. M.V.I. [Concomitant]
     Route: 048
  6. IBUPROFEN [Concomitant]
     Dosage: 1DF:200-400MG Q 6 HRS PRN
     Route: 048
  7. OMEGA 3 FATTY ACID [Concomitant]
     Route: 048
  8. LYRICA [Concomitant]
     Route: 048
  9. NIFEDIPINE [Concomitant]
     Route: 048

REACTIONS (4)
  - ASTHENIA [None]
  - DEEP VEIN THROMBOSIS [None]
  - PYREXIA [None]
  - DIARRHOEA [None]
